FAERS Safety Report 5076411-0 (Version None)
Quarter: 2006Q3

REPORT INFORMATION
  Report Type: 
  Country: None (occurrence: None)
  Receive Date: 20060728
  Receipt Date: 20060405
  Transmission Date: 20061208
  Serious: Yes (Other)
  Sender: FDA-Public Use
  Company Number: US200603001637

PATIENT
  Age: 7 Year
  Sex: Male
  Weight: 23.1 kg

DRUGS (2)
  1. STRATTERA [Suspect]
     Indication: ATTENTION DEFICIT/HYPERACTIVITY DISORDER
     Dosage: SEE IMAGE
     Dates: start: 20050426
  2. OMEGA 3 (FISH OIL) [Concomitant]

REACTIONS (7)
  - ABDOMINAL PAIN UPPER [None]
  - AMNESIA [None]
  - CRYING [None]
  - GROWTH RETARDATION [None]
  - HOSTILITY [None]
  - NASAL DRYNESS [None]
  - SUICIDAL IDEATION [None]
